FAERS Safety Report 12094762 (Version 1)
Quarter: 2016Q1

REPORT INFORMATION
  Report Type: Report from Study
  Country: US (occurrence: US)
  Receive Date: 20160219
  Receipt Date: 20160219
  Transmission Date: 20160526
  Serious: Yes (Life-Threatening)
  Sender: FDA-Public Use
  Company Number: US-EISAI MEDICAL RESEARCH-EC-2016-014501

PATIENT
  Age: 58 Year
  Sex: Female

DRUGS (12)
  1. CYANOCOBALAMIN. [Concomitant]
     Active Substance: CYANOCOBALAMIN
  2. ADVIL [Concomitant]
     Active Substance: IBUPROFEN
  3. ATIVAN [Concomitant]
     Active Substance: LORAZEPAM
  4. ALUMINUM HYDROXIDE/DIPHENHYDRAMINE NOS/LIDOCAINE/MAGNESIUM HYDROXIDE/S [Concomitant]
  5. PERTUZUMAB [Suspect]
     Active Substance: PERTUZUMAB
     Indication: HER-2 POSITIVE BREAST CANCER
     Route: 041
     Dates: start: 20151223, end: 201601
  6. XELODA [Concomitant]
     Active Substance: CAPECITABINE
  7. CHOLECALCIFEROL [Concomitant]
     Active Substance: CHOLECALCIFEROL
  8. ERIBULIN [Suspect]
     Active Substance: ERIBULIN
     Indication: HER-2 POSITIVE BREAST CANCER
     Dosage: UNKNOWN
     Route: 041
  9. LEVAQUIN [Concomitant]
     Active Substance: LEVOFLOXACIN
  10. PYRIDOXINE [Concomitant]
     Active Substance: PYRIDOXINE
  11. TRASTUZUMAB [Suspect]
     Active Substance: TRASTUZUMAB
     Indication: HER-2 POSITIVE BREAST CANCER
     Route: 041
     Dates: start: 20151223, end: 201601
  12. NEUPOGEN [Concomitant]
     Active Substance: FILGRASTIM

REACTIONS (2)
  - Herpes zoster [Unknown]
  - Neutropenia [Unknown]

NARRATIVE: CASE EVENT DATE: 20160205
